FAERS Safety Report 17196005 (Version 1)
Quarter: 2019Q4

REPORT INFORMATION
  Report Type: Report from Study
  Country: IT (occurrence: IT)
  Receive Date: 20191224
  Receipt Date: 20191224
  Transmission Date: 20200122
  Serious: Yes (Hospitalization, Other)
  Sender: FDA-Public Use
  Company Number: NVSC2019IT077812

PATIENT
  Age: 57 Year
  Sex: Female

DRUGS (1)
  1. ENTRESTO [Suspect]
     Active Substance: SACUBITRIL\VALSARTAN
     Dosage: 1 DF, BID (24 MG OF SACUBITRIL/ 26 MG OF VALSARTAN), BID
     Route: 065
     Dates: start: 20190810

REACTIONS (4)
  - Feeling abnormal [Unknown]
  - Heart rate increased [Unknown]
  - Hypokinesia [Unknown]
  - Ankle fracture [Unknown]

NARRATIVE: CASE EVENT DATE: 20190810
